FAERS Safety Report 10840100 (Version 1)
Quarter: 2015Q1

REPORT INFORMATION
  Report Type: Report from Study
  Country: US (occurrence: US)
  Receive Date: 20150220
  Receipt Date: 20150220
  Transmission Date: 20150721
  Serious: No
  Sender: FDA-Public Use
  Company Number: US-ABBVIE-14P-163-1242784-00

PATIENT
  Age: 35 Year
  Sex: Female
  Weight: 52.66 kg

DRUGS (5)
  1. HUMIRA [Suspect]
     Active Substance: ADALIMUMAB
     Dates: start: 20140515, end: 20140515
  2. HUMIRA [Suspect]
     Active Substance: ADALIMUMAB
     Dates: start: 20140529, end: 20140529
  3. NORCO [Concomitant]
     Active Substance: ACETAMINOPHEN\HYDROCODONE BITARTRATE
     Indication: PRODUCT USED FOR UNKNOWN INDICATION
  4. HUMIRA [Suspect]
     Active Substance: ADALIMUMAB
     Indication: CROHN^S DISEASE
     Dates: start: 20140422, end: 20140423
  5. HUMIRA [Suspect]
     Active Substance: ADALIMUMAB
     Dates: start: 20140507, end: 20140507

REACTIONS (2)
  - Abdominal pain [Not Recovered/Not Resolved]
  - Incorrect dosage administered [Not Recovered/Not Resolved]

NARRATIVE: CASE EVENT DATE: 20140422
